FAERS Safety Report 5237515-2 (Version None)
Quarter: 2007Q1

REPORT INFORMATION
  Report Type: 
  Country: None (occurrence: None)
  Receive Date: 20070213
  Receipt Date: 20070205
  Transmission Date: 20070707
  Serious: Yes (Death, Other)
  Sender: FDA-Public Use
  Company Number: JP-ELI_LILLY_AND_COMPANY-JP200612003210

PATIENT
  Age: 57 Year
  Sex: Female
  Weight: 39.7 kg

DRUGS (13)
  1. GEMZAR [Suspect]
     Indication: PANCREATIC CARCINOMA STAGE IV
     Dosage: 1000 MG, OTHER
     Route: 042
     Dates: start: 20061122, end: 20061122
  2. GEMZAR [Suspect]
     Dosage: 800 MG, OTHER
     Route: 042
     Dates: start: 20061201, end: 20061201
  3. CISPLATIN [Concomitant]
     Indication: PANCREATIC CARCINOMA STAGE IV
     Dosage: 10 MG, OTHER
     Route: 042
     Dates: start: 20061122, end: 20061122
  4. GASTER D [Concomitant]
     Indication: PROPHYLAXIS
     Dosage: 200 MG, 2/D
     Route: 048
  5. FOIPAN [Concomitant]
     Indication: PROPHYLAXIS
     Dosage: 200 MG, 3/D
     Route: 048
  6. GASMOTIN [Concomitant]
     Indication: NAUSEA
     Dosage: 1 TABLET, 3/D
     Route: 048
  7. LOXONIN [Concomitant]
     Indication: PAIN
     Dosage: 60 MG, 3/D
     Route: 048
  8. MAGNESIUM OXIDE [Concomitant]
     Indication: CONSTIPATION
     Dosage: 1 G, 3/D
     Route: 048
  9. TOFRANIL [Concomitant]
     Indication: INSOMNIA
     Dosage: 10 MG, DAILY (1/D)
     Route: 048
  10. LORAZEPAM [Concomitant]
     Indication: INSOMNIA
     Dosage: 1.5 MG, DAILY (1/D)
     Route: 048
  11. ZOFRAN ZYDIS [Concomitant]
     Indication: NAUSEA
     Dosage: 4 MG, DAILY (1/D)
     Route: 048
  12. DUROTEP [Concomitant]
     Indication: PAIN
     Dosage: 15 MG, DAILY (1/D)
     Route: 062
  13. LAXOBERON [Concomitant]

REACTIONS (5)
  - ACUTE RESPIRATORY DISTRESS SYNDROME [None]
  - BONE MARROW FAILURE [None]
  - DISSEMINATED INTRAVASCULAR COAGULATION [None]
  - PNEUMONIA [None]
  - SEPTIC SHOCK [None]
